FAERS Safety Report 4504053-1 (Version None)
Quarter: 2004Q4

REPORT INFORMATION
  Report Type: 
  Country: None (occurrence: None)
  Receive Date: 20041115
  Receipt Date: 20041102
  Transmission Date: 20050328
  Serious: Yes (Hospitalization)
  Sender: FDA-Public Use
  Company Number: 2004076191

PATIENT
  Sex: Female

DRUGS (2)
  1. ZANTAC 75 [Suspect]
     Dosage: UNSPECIFIED DOSE, 1-2X DAILY, ORAL
     Route: 048
     Dates: start: 19990101
  2. CELECOXIB (CELECOXIB) [Concomitant]

REACTIONS (2)
  - INTESTINAL RESECTION [None]
  - WEIGHT DECREASED [None]
